FAERS Safety Report 8481517-X (Version None)
Quarter: 2012Q2

REPORT INFORMATION
  Report Type: 
  Country: None (occurrence: None)
  Receive Date: 20120625
  Receipt Date: 20120614
  Transmission Date: 20120825
  Serious: Yes (Hospitalization)
  Sender: FDA-Public Use
  Company Number: 2012042013

PATIENT
  Age: 73 Year
  Sex: Male

DRUGS (7)
  1. AMLODIPINE [Concomitant]
  2. ISMN - SLOW RELEASE (ISOSORBIDE MONONITRATE) [Concomitant]
  3. DALTEPARIN SODIUM [Suspect]
     Indication: LUNG NEOPLASM MALIGNANT
     Dosage: SUBCUTANEOUS 15000 IU DAILY, SUBCUTANEOUS 5000 IU DAILY
     Route: 058
     Dates: start: 20120213, end: 20120216
  4. DALTEPARIN SODIUM [Suspect]
     Indication: LUNG NEOPLASM MALIGNANT
     Dosage: SUBCUTANEOUS 15000 IU DAILY, SUBCUTANEOUS 5000 IU DAILY
     Route: 058
     Dates: start: 20120217
  5. DALTEPARIN SODIUM [Suspect]
     Indication: LUNG NEOPLASM MALIGNANT
     Dosage: SUBCUTANEOUS 15000 IU DAILY, SUBCUTANEOUS 5000 IU DAILY
     Route: 058
     Dates: start: 20111121, end: 20120212
  6. SIMVASTATIN [Concomitant]
  7. ZOLPIDEM [Concomitant]

REACTIONS (2)
  - DYSPNOEA [None]
  - CHEST PAIN [None]
